FAERS Safety Report 8109696-4 (Version None)
Quarter: 2012Q1

REPORT INFORMATION
  Report Type: 
  Country: None (occurrence: None)
  Receive Date: 20120202
  Receipt Date: 20120118
  Transmission Date: 20120608
  Serious: No
  Sender: FDA-Public Use
  Company Number: US-AMGEN-USASP2012003722

PATIENT
  Age: 72 Year
  Sex: Male

DRUGS (2)
  1. METHOTREXATE [Concomitant]
     Dosage: 3 MG, UNK
     Dates: start: 20110101
  2. ENBREL [Suspect]
     Indication: PSORIASIS
     Dosage: 50 MG, QWK
     Dates: start: 20040928

REACTIONS (3)
  - DIZZINESS [None]
  - PSORIASIS [None]
  - VISION BLURRED [None]
